FAERS Safety Report 7232765-8 (Version None)
Quarter: 2011Q1

REPORT INFORMATION
  Report Type: 
  Country: None (occurrence: None)
  Receive Date: 20110119
  Receipt Date: 20110114
  Transmission Date: 20110831
  Serious: Yes (Other)
  Sender: FDA-Public Use
  Company Number: US-PFIZER INC-2010174832

PATIENT
  Sex: Female
  Weight: 73 kg

DRUGS (3)
  1. VERAPAMIL [Concomitant]
     Indication: HYPERTENSION
     Dosage: 300 MG, 1X/DAY
  2. NICOTROL [Suspect]
     Indication: SMOKING CESSATION THERAPY
     Dosage: UNK
     Route: 045
     Dates: start: 20101113, end: 20101201
  3. METOPROLOL [Concomitant]
     Indication: ARTERIAL OCCLUSIVE DISEASE
     Dosage: 25 MG, DAILY
     Dates: start: 20100101

REACTIONS (7)
  - MEMORY IMPAIRMENT [None]
  - HALLUCINATION [None]
  - INSOMNIA [None]
  - FEELING ABNORMAL [None]
  - NIGHTMARE [None]
  - RASH [None]
  - ABNORMAL DREAMS [None]
